FAERS Safety Report 10881259 (Version 1)
Quarter: 2015Q1

REPORT INFORMATION
  Report Type: Spontaneous
  Country: US (occurrence: US)
  Receive Date: 20150303
  Receipt Date: 20150303
  Transmission Date: 20150721
  Serious: No
  Sender: FDA-Public Use
  Company Number: US-PFIZER INC-2015074620

PATIENT
  Age: 79 Year
  Sex: Female
  Weight: 100 kg

DRUGS (3)
  1. INLYTA [Suspect]
     Active Substance: AXITINIB
     Indication: NEOPLASM MALIGNANT
     Dosage: 5 PILLS DAILY (3 PILL OF ^100 MG^ IN MORNING AND 2 PILLS IN THE NIGHT)
     Dates: start: 201411
  2. VERAPAMIL [Concomitant]
     Active Substance: VERAPAMIL HYDROCHLORIDE
     Indication: BLOOD PRESSURE ABNORMAL
     Dosage: 240 MG, UNK
  3. LEVOTHYROXINE [Concomitant]
     Active Substance: LEVOTHYROXINE
     Indication: THYROID DISORDER
     Dosage: 75 MG, UNK

REACTIONS (4)
  - Nervousness [Unknown]
  - Fatigue [Unknown]
  - Feeling abnormal [Unknown]
  - Blood pressure increased [Unknown]
